FAERS Safety Report 25212863 (Version 1)
Quarter: 2025Q2

REPORT INFORMATION
  Report Type: Spontaneous
  Country: US (occurrence: US)
  Receive Date: 20250418
  Receipt Date: 20250418
  Transmission Date: 20250716
  Serious: No
  Sender: AUROBINDO
  Company Number: US-AUROBINDO-AUR-APL-2025-002690

PATIENT
  Age: 70 Year
  Sex: Male

DRUGS (1)
  1. ARMODAFINIL [Suspect]
     Active Substance: ARMODAFINIL
     Indication: Narcolepsy
     Dosage: UNK UNK, 3 TIMES A DAY (I.E 50 MG BEFORE 30 MIN OF BREAKFAST AT 08 O CLOCK IN THE MORNING, 50 MG BEF
     Route: 065

REACTIONS (1)
  - Insomnia [Unknown]
